FAERS Safety Report 4684310-9 (Version None)
Quarter: 2005Q2

REPORT INFORMATION
  Report Type: 
  Country: None (occurrence: None)
  Receive Date: 20050607
  Receipt Date: 20050601
  Transmission Date: 20051028
  Serious: Yes (Other)
  Sender: FDA-Public Use
  Company Number: 2005PK00951

PATIENT
  Age: 34 Year
  Sex: Female
  Weight: 40.5 kg

DRUGS (14)
  1. SEROQUEL [Suspect]
     Route: 048
     Dates: start: 20040922, end: 20040924
  2. SEROQUEL [Suspect]
     Route: 048
     Dates: start: 20040925, end: 20040927
  3. SEROQUEL [Suspect]
     Route: 048
     Dates: start: 20040928, end: 20040930
  4. SEROQUEL [Suspect]
     Route: 048
     Dates: start: 20041001, end: 20041004
  5. SEROQUEL [Suspect]
     Route: 048
     Dates: start: 20041005, end: 20041011
  6. SEROQUEL [Suspect]
     Route: 048
     Dates: start: 20041012
  7. SOMNUBENE [Concomitant]
     Route: 048
     Dates: start: 20040922, end: 20041011
  8. SOMNUBENE [Concomitant]
     Route: 048
     Dates: start: 20041012, end: 20041019
  9. SOMNUBENE [Concomitant]
     Route: 048
     Dates: start: 20041020, end: 20041028
  10. ZYPREXA [Concomitant]
     Route: 048
     Dates: start: 20050922, end: 20050924
  11. ZYPREXA [Concomitant]
     Route: 048
     Dates: start: 20050925, end: 20050927
  12. ZYPREXA [Concomitant]
     Route: 048
     Dates: start: 20050928, end: 20050930
  13. ZYPREXA [Concomitant]
     Route: 048
     Dates: start: 20051001, end: 20051004
  14. FORLAX [Concomitant]
     Dates: start: 20040922

REACTIONS (8)
  - FACE INJURY [None]
  - FACIAL BONES FRACTURE [None]
  - FALL [None]
  - HYPOTENSION [None]
  - HYPOTHYROIDISM [None]
  - LEUKOPENIA [None]
  - LOSS OF CONSCIOUSNESS [None]
  - WEIGHT DECREASED [None]
